FAERS Safety Report 10254119 (Version 5)
Quarter: 2014Q3

REPORT INFORMATION
  Report Type: Spontaneous
  Country: US (occurrence: US)
  Receive Date: 20140623
  Receipt Date: 20140908
  Transmission Date: 20150326
  Serious: No
  Sender: FDA-Public Use
  Company Number: US-009507513-1406USA011078

PATIENT
  Sex: Female
  Weight: 136.51 kg

DRUGS (1)
  1. IMPLANON [Suspect]
     Active Substance: ETONOGESTREL
     Dosage: 1 ROD
     Route: 059
     Dates: end: 20140828

REACTIONS (3)
  - Device dislocation [Recovered/Resolved]
  - Medical device complication [Recovered/Resolved]
  - No adverse event [Unknown]
